FAERS Safety Report 7408100-9 (Version None)
Quarter: 2011Q2

REPORT INFORMATION
  Report Type: 
  Country: None (occurrence: None)
  Receive Date: 20110412
  Receipt Date: 20110331
  Transmission Date: 20111010
  Serious: Yes (Hospitalization)
  Sender: FDA-Public Use
  Company Number: US-MYLANLABS-2011S1004525

PATIENT
  Age: 45 Year
  Sex: Female

DRUGS (4)
  1. CLOZAPINE [Suspect]
     Indication: SCHIZOAFFECTIVE DISORDER
     Route: 048
     Dates: end: 20110216
  2. HALDOL [Concomitant]
  3. CYMBALTA [Concomitant]
  4. LITHIUM [Suspect]
     Indication: SCHIZOAFFECTIVE DISORDER

REACTIONS (2)
  - GRANULOCYTOPENIA [None]
  - RENAL FAILURE ACUTE [None]
